FAERS Safety Report 6214542-X (Version None)
Quarter: 2009Q2

REPORT INFORMATION
  Report Type: 
  Country: None (occurrence: None)
  Receive Date: 20090604
  Receipt Date: 20090504
  Transmission Date: 20091009
  Serious: No
  Sender: FDA-Public Use
  Company Number: US-BAYER-200919978NA

PATIENT
  Age: 34 Year
  Sex: Female

DRUGS (1)
  1. MIRENA [Suspect]
     Indication: CONTRACEPTION
     Route: 015
     Dates: start: 20090406, end: 20090421

REACTIONS (4)
  - ABDOMINAL PAIN LOWER [None]
  - HYDROMETRA [None]
  - IUCD COMPLICATION [None]
  - PAIN [None]
